FAERS Safety Report 9521461 (Version 2)
Quarter: 2013Q3

REPORT INFORMATION
  Report Type: Spontaneous
  Country: FR (occurrence: FR)
  Receive Date: 20130913
  Receipt Date: 20130925
  Transmission Date: 20140515
  Serious: Yes (Hospitalization, Other)
  Sender: FDA-Public Use
  Company Number: FR-PFIZER INC-2013263055

PATIENT
  Age: 93 Year
  Sex: Male

DRUGS (8)
  1. AMIODARONE HCL [Suspect]
     Indication: ATRIAL FIBRILLATION
     Dosage: 200 MG, DAILY
     Route: 048
  2. LASILIX [Suspect]
     Indication: HYPERTENSION
     Dosage: 20 MG, DAILY
     Route: 048
     Dates: start: 2013, end: 20130815
  3. XATRAL [Suspect]
     Indication: BENIGN PROSTATIC HYPERPLASIA
     Dosage: 10 MG, DAILY
     Route: 048
  4. RENITEC [Suspect]
     Indication: HYPERTENSION
     Dosage: 10 MG, DAILY
     Route: 048
  5. AVODART [Suspect]
     Indication: BENIGN PROSTATIC HYPERPLASIA
     Dosage: 0.5 MG, DAILY
     Route: 048
  6. PREVISCAN [Concomitant]
     Dosage: UNK
     Dates: start: 2013
  7. KARDEGIC [Concomitant]
     Dosage: UNK
  8. DAFALGAN [Concomitant]
     Dosage: UNK
     Dates: end: 20130814

REACTIONS (5)
  - Orthostatic hypotension [Recovered/Resolved]
  - Fall [Recovered/Resolved]
  - Rhabdomyolysis [Recovered/Resolved]
  - Renal failure acute [Recovered/Resolved]
  - Dementia Alzheimer^s type [Unknown]
